FAERS Safety Report 5606745-X (Version None)
Quarter: 2008Q1

REPORT INFORMATION
  Report Type: 
  Country: None (occurrence: None)
  Receive Date: 20080129
  Receipt Date: 20080117
  Transmission Date: 20080703
  Serious: Yes (Other)
  Sender: FDA-Public Use
  Company Number: US-PFIZER INC-2007042456

PATIENT
  Sex: Female

DRUGS (7)
  1. LYRICA [Suspect]
     Indication: NEUROPATHY PERIPHERAL
  2. EVISTA [Concomitant]
  3. ACTONEL [Concomitant]
  4. VITAMINS [Concomitant]
  5. SEREVENT [Concomitant]
  6. MONTELUKAST SODIUM [Concomitant]
  7. ALBUTEROL [Concomitant]

REACTIONS (8)
  - ASTHENIA [None]
  - BALANCE DISORDER [None]
  - CATARACT OPERATION [None]
  - DISTURBANCE IN ATTENTION [None]
  - DIZZINESS [None]
  - DRUG INEFFECTIVE [None]
  - SOMNOLENCE [None]
  - VISION BLURRED [None]
